FAERS Safety Report 23713618 (Version 1)
Quarter: 2024Q2

REPORT INFORMATION
  Report Type: Spontaneous
  Country: US (occurrence: US)
  Receive Date: 20240405
  Receipt Date: 20240405
  Transmission Date: 20240716
  Serious: Yes (Other)
  Sender: FDA-Public Use
  Company Number: US-JNJFOC-20240376794

PATIENT
  Age: 12 Year
  Sex: Male

DRUGS (3)
  1. DARZALEX [Suspect]
     Active Substance: DARATUMUMAB
     Indication: Glomerulonephritis proliferative
     Dosage: FOR 8 WEEKS
     Route: 065
  2. DARZALEX [Suspect]
     Active Substance: DARATUMUMAB
     Route: 065
  3. DARZALEX [Suspect]
     Active Substance: DARATUMUMAB
     Dosage: MAINTENANCE DOSE
     Route: 065

REACTIONS (4)
  - Hypogammaglobulinaemia [Unknown]
  - T-lymphocyte count decreased [Unknown]
  - Natural killer cell count decreased [Unknown]
  - Off label use [Unknown]
